FAERS Safety Report 12923781 (Version 1)
Quarter: 2016Q4

REPORT INFORMATION
  Report Type: Spontaneous
  Country: US (occurrence: US)
  Receive Date: 20161109
  Receipt Date: 20161109
  Transmission Date: 20170207
  Serious: Yes (Disabling)
  Sender: FDA-Public Use
  Company Number: None

PATIENT
  Age: 58 Year
  Sex: Female

DRUGS (4)
  1. VITAFUSIOIN PLATINUM 50+ MULTI [Concomitant]
  2. CIPROFLOXACIN TAB [Suspect]
     Active Substance: CIPROFLOXACIN
     Indication: URINARY TRACT INFECTION
     Route: 048
     Dates: start: 20160614, end: 20160621
  3. ACEROLA-C [Concomitant]
  4. NATROL VITAMIN D3 [Concomitant]

REACTIONS (2)
  - Balance disorder [None]
  - Pain in extremity [None]

NARRATIVE: CASE EVENT DATE: 20160629
